FAERS Safety Report 9368949 (Version 2)
Quarter: 2013Q3

REPORT INFORMATION
  Report Type: Spontaneous
  Country: US (occurrence: None)
  Receive Date: 20130621
  Receipt Date: 20130725
  Transmission Date: 20140515
  Serious: Yes (Death)
  Sender: FDA-Public Use
  Company Number: 2013P1007791

PATIENT
  Age: 31 Year
  Sex: Male
  Weight: 81.65 kg

DRUGS (1)
  1. XENADERM OINTMENT [Suspect]
     Indication: WOUND
     Dosage: TOP
     Route: 061
     Dates: start: 201302, end: 2013

REACTIONS (4)
  - Pyrexia [None]
  - Delusion [None]
  - Refusal of treatment by patient [None]
  - Pneumonia [None]
